FAERS Safety Report 19763935 (Version 1)
Quarter: 2021Q3

REPORT INFORMATION
  Report Type: Report from Study
  Country: CA (occurrence: CA)
  Receive Date: 20210830
  Receipt Date: 20210830
  Transmission Date: 20211014
  Serious: Yes (Other)
  Sender: FDA-Public Use
  Company Number: CA-TAKEDA-2021TUS053361

PATIENT
  Age: 29 Year
  Sex: Female

DRUGS (5)
  1. LOLO [Concomitant]
     Active Substance: ETHINYL ESTRADIOL\NORETHINDRONE ACETATE
     Indication: ORAL CONTRACEPTION
     Dosage: UNK
  2. CALCIUM AND VITAMIN D [Concomitant]
     Active Substance: CALCIUM\VITAMIN D
     Dosage: UNK
  3. PREDNISONE. [Concomitant]
     Active Substance: PREDNISONE
     Dosage: 40 MILLIGRAM
     Dates: start: 20160109
  4. VEDOLIZUMAB [Suspect]
     Active Substance: VEDOLIZUMAB
     Indication: COLITIS ULCERATIVE
     Dosage: 300 MILLIGRAM
     Route: 042
     Dates: start: 20160208
  5. PREDNISONE. [Concomitant]
     Active Substance: PREDNISONE
     Dosage: UNK, 1/WEEK

REACTIONS (3)
  - Haematochezia [Unknown]
  - Pregnancy [Unknown]
  - Faecal volume increased [Unknown]
